FAERS Safety Report 23860496 (Version 1)
Quarter: 2024Q2

REPORT INFORMATION
  Report Type: Spontaneous
  Country: FR (occurrence: FR)
  Receive Date: 20240516
  Receipt Date: 20240516
  Transmission Date: 20240716
  Serious: Yes (Other)
  Sender: FDA-Public Use
  Company Number: None

PATIENT
  Age: 50 Year
  Sex: Female

DRUGS (10)
  1. OXALIPLATIN [Suspect]
     Active Substance: OXALIPLATIN
     Indication: Small intestine adenocarcinoma
     Dosage: 1 DF, C1
     Route: 042
     Dates: start: 20230720, end: 20230720
  2. OXALIPLATIN [Suspect]
     Active Substance: OXALIPLATIN
     Dosage: 1 DF, C2
     Route: 042
     Dates: start: 20230803, end: 20230803
  3. OXALIPLATIN [Suspect]
     Active Substance: OXALIPLATIN
     Dosage: 1 DF, C3
     Route: 042
     Dates: start: 20230817, end: 20230817
  4. OXALIPLATIN [Suspect]
     Active Substance: OXALIPLATIN
     Dosage: 1 DF, C4
     Route: 042
     Dates: start: 20230831, end: 20230831
  5. OXALIPLATIN [Suspect]
     Active Substance: OXALIPLATIN
     Dosage: 1 DF, C5
     Route: 042
     Dates: start: 20230914, end: 20230914
  6. FLUOROURACIL [Suspect]
     Active Substance: FLUOROURACIL
     Indication: Small intestine adenocarcinoma
     Dosage: 1 DF C3
     Route: 042
     Dates: start: 20230817, end: 20230817
  7. FLUOROURACIL [Suspect]
     Active Substance: FLUOROURACIL
     Dosage: 1 DF, C2
     Route: 042
     Dates: start: 20230803, end: 20230803
  8. FLUOROURACIL [Suspect]
     Active Substance: FLUOROURACIL
     Dosage: 1 DF, C4
     Route: 042
     Dates: start: 20230831, end: 20230831
  9. FLUOROURACIL [Suspect]
     Active Substance: FLUOROURACIL
     Dosage: 1 DF, C5
     Route: 042
     Dates: start: 20230914, end: 20230914
  10. FLUOROURACIL [Suspect]
     Active Substance: FLUOROURACIL
     Dosage: 1 DF, C1
     Route: 042
     Dates: start: 20230720, end: 20230720

REACTIONS (2)
  - Laryngeal oedema [Recovered/Resolved]
  - Dyspnoea [Recovered/Resolved]

NARRATIVE: CASE EVENT DATE: 20230817
